FAERS Safety Report 8708733 (Version 7)
Quarter: 2012Q4

REPORT INFORMATION
  Report Type: 
  Country: JP (occurrence: JP)
  Receive Date: 20120806
  Receipt Date: 20121003
  Transmission Date: 20130627
  Serious: Yes (Hospitalization)
  Sender: FDA-Public Use
  Company Number: JP-ASTRAZENECA-2012SE53957

PATIENT
  Age: 76 Year
  Sex: Female
  Weight: 39 kg

DRUGS (8)
  1. FASLODEX [Suspect]
     Indication: BREAST CANCER
     Route: 030
     Dates: start: 20120605, end: 20120703
  2. ZOMETA [Concomitant]
     Indication: METASTASES TO BONE
     Route: 042
     Dates: start: 20110804
  3. HYSRON-H [Concomitant]
     Indication: BREAST CANCER
     Route: 048
     Dates: start: 20111206
  4. ALFAROL [Concomitant]
     Indication: OSTEOPOROSIS
     Route: 048
     Dates: start: 20110816
  5. TRAMAL [Concomitant]
     Indication: CANCER PAIN
     Route: 048
     Dates: start: 20111011
  6. DEPAS [Concomitant]
     Indication: INSOMNIA
     Route: 048
     Dates: start: 20110802
  7. EURODIN [Concomitant]
     Indication: INSOMNIA
     Route: 048
     Dates: start: 20110805
  8. REFLEX [Concomitant]
     Indication: DEPRESSION
     Route: 048
     Dates: start: 20111206

REACTIONS (1)
  - Injection site cellulitis [Recovered/Resolved]
